FAERS Safety Report 4529393-1 (Version None)
Quarter: 2004Q4

REPORT INFORMATION
  Report Type: 
  Country: None (occurrence: None)
  Receive Date: 20041214
  Receipt Date: 20041201
  Transmission Date: 20050328
  Serious: Yes (Hospitalization)
  Sender: FDA-Public Use
  Company Number: 2004AP04846

PATIENT
  Age: 73 Year
  Sex: Male

DRUGS (1)
  1. ZOLADEX [Suspect]
     Indication: PROSTATE CANCER
     Dosage: 10.8 MG Q3MO SQ
     Dates: start: 20031127, end: 20040226

REACTIONS (2)
  - POST PROCEDURAL COMPLICATION [None]
  - URETHRAL STRICTURE [None]
